FAERS Safety Report 8269354-2 (Version None)
Quarter: 2012Q2

REPORT INFORMATION
  Report Type: 
  Country: None (occurrence: None)
  Receive Date: 20120409
  Receipt Date: 20120403
  Transmission Date: 20120825
  Serious: Yes (Other)
  Sender: FDA-Public Use
  Company Number: US-ABBOTT-12P-163-0894557-00

PATIENT
  Sex: Female
  Weight: 93.07 kg

DRUGS (12)
  1. SEROQUEL [Concomitant]
     Indication: PRODUCT USED FOR UNKNOWN INDICATION
  2. HYDROXYZINE HCL [Concomitant]
     Indication: PRODUCT USED FOR UNKNOWN INDICATION
  3. DOXEPIN HCL [Concomitant]
     Indication: PRODUCT USED FOR UNKNOWN INDICATION
  4. DICYCLOMINE [Concomitant]
     Indication: PRODUCT USED FOR UNKNOWN INDICATION
  5. HUMIRA [Suspect]
     Indication: CROHN'S DISEASE
     Route: 058
     Dates: start: 20110323
  6. VITAMIN D [Concomitant]
     Indication: PRODUCT USED FOR UNKNOWN INDICATION
  7. METHOTREXATE [Concomitant]
     Indication: PRODUCT USED FOR UNKNOWN INDICATION
  8. METFORMIN HCL [Concomitant]
     Indication: PRODUCT USED FOR UNKNOWN INDICATION
  9. LOVASTATIN [Concomitant]
     Indication: PRODUCT USED FOR UNKNOWN INDICATION
  10. HYDROCHLOROTHIAZIDE [Concomitant]
     Indication: PRODUCT USED FOR UNKNOWN INDICATION
  11. BUSPIRONE HCL [Concomitant]
     Indication: PRODUCT USED FOR UNKNOWN INDICATION
  12. BENZTROPINE MESYLATE [Concomitant]
     Indication: PRODUCT USED FOR UNKNOWN INDICATION

REACTIONS (14)
  - VISUAL ACUITY REDUCED [None]
  - WEIGHT DECREASED [None]
  - NASAL MUCOSAL DISORDER [None]
  - DIZZINESS [None]
  - PYREXIA [None]
  - DIARRHOEA [None]
  - VOMITING [None]
  - INJECTION SITE PAIN [None]
  - STOMATITIS [None]
  - FATIGUE [None]
  - PAIN [None]
  - EYE PAIN [None]
  - NIGHT SWEATS [None]
  - BACK PAIN [None]
